FAERS Safety Report 25816090 (Version 1)
Quarter: 2025Q3

REPORT INFORMATION
  Report Type: Spontaneous
  Country: EU (occurrence: EU)
  Receive Date: 20250918
  Receipt Date: 20250918
  Transmission Date: 20251021
  Serious: Yes (Death, Other)
  Sender: AUROBINDO
  Company Number: EU-AFSSAPS-TO2025000367

PATIENT
  Age: 69 Year
  Sex: Female

DRUGS (5)
  1. NAPROXEN [Suspect]
     Active Substance: NAPROXEN
     Indication: Juvenile idiopathic arthritis
     Dosage: 275 MILLIGRAM, ONCE A DAY
     Route: 048
     Dates: start: 202410
  2. HULIO [Suspect]
     Active Substance: ADALIMUMAB-FKJP
     Indication: Juvenile idiopathic arthritis
     Dosage: 40 MILLIGRAM, ONCE A DAY
     Route: 058
     Dates: start: 20241221, end: 20241221
  3. HYDROXYCHLOROQUINE [Concomitant]
     Active Substance: HYDROXYCHLOROQUINE
     Indication: Product used for unknown indication
     Route: 065
  4. HYDROCORTISONE ACETATE [Concomitant]
     Active Substance: HYDROCORTISONE ACETATE
     Indication: Product used for unknown indication
     Route: 065
  5. OMEPRAZOLE [Concomitant]
     Active Substance: OMEPRAZOLE
     Indication: Product used for unknown indication
     Route: 065

REACTIONS (1)
  - Immune thrombocytopenia [Fatal]

NARRATIVE: CASE EVENT DATE: 20250104
